FAERS Safety Report 18075761 (Version 1)
Quarter: 2020Q3

REPORT INFORMATION
  Report Type: Spontaneous
  Country: TR (occurrence: TR)
  Receive Date: 20200728
  Receipt Date: 20200728
  Transmission Date: 20201103
  Serious: Yes (Other)
  Sender: FDA-Public Use
  Company Number: TR-SUN PHARMACEUTICAL INDUSTRIES LTD-2020RR-255092

PATIENT
  Age: 24 Year
  Sex: Female

DRUGS (3)
  1. RISPERIDONE. [Suspect]
     Active Substance: RISPERIDONE
     Indication: SCHIZOPHRENIA
     Dosage: 1.5 MILLIGRAM, DAILY
     Route: 065
  2. HALOPERIDOL. [Suspect]
     Active Substance: HALOPERIDOL
     Indication: SCHIZOPHRENIA
     Dosage: 0.8 MILLIGRAM, DAILY
     Route: 065
  3. HALOPERIDOL. [Suspect]
     Active Substance: HALOPERIDOL
     Dosage: 1.5 MILLIGRAM, DAILY
     Route: 065

REACTIONS (6)
  - Irritability [Unknown]
  - Exposure during pregnancy [Unknown]
  - Delusion [Unknown]
  - Anxiety [Unknown]
  - Therapeutic product effect incomplete [Unknown]
  - Exposure via breast milk [Unknown]
